FAERS Safety Report 24549737 (Version 2)
Quarter: 2024Q4

REPORT INFORMATION
  Report Type: Report from Study
  Country: PT (occurrence: PT)
  Receive Date: 20241025
  Receipt Date: 20241031
  Transmission Date: 20250114
  Serious: Yes (Other)
  Sender: ABBVIE
  Company Number: PT-ABBVIE-5966034

PATIENT
  Age: 51 Year
  Sex: Male

DRUGS (7)
  1. CARBIDOPA\LEVODOPA [Suspect]
     Active Substance: CARBIDOPA\LEVODOPA
     Indication: Parkinson^s disease
     Dosage: 240 MG + 12 MG
     Route: 058
     Dates: start: 20241010
  2. CARBIDOPA\LEVODOPA [Suspect]
     Active Substance: CARBIDOPA\LEVODOPA
     Dosage: 240 MG + 12 MG, LAST ADMIN DATE: 2024
     Route: 058
     Dates: start: 20240724
  3. MELATONIN [Concomitant]
     Active Substance: MELATONIN
     Indication: Product used for unknown indication
     Dosage: 8 DROP, AT BEDTIME, BEFORE DUODOPA FORM STRENGTH: 6 MILLIGRAM/MILLILITERS
     Route: 048
  4. Gutron (midodrine) [Concomitant]
     Indication: Orthostatic hypotension
     Dosage: 5 TABLET (2TA UPON WAKING UP + 3TA BEFORE LUNCH), BEFORE DUODOPA, FORM STRENGTH: 2.5 MILLIGRAM
     Route: 048
  5. VENLAFAXINE [Concomitant]
     Active Substance: VENLAFAXINE HYDROCHLORIDE
     Indication: Product used for unknown indication
     Dosage: 1 TABLET, AT BREAKFAST, BEFORE DUODOPA, FORM STRENGTH: 75 MILLIGRAM
     Route: 048
  6. ropinirole LP [Concomitant]
     Indication: Product used for unknown indication
     Dosage: 1 TABLET, AT DINNER, BEFORE DUODOPA, FORM STRENGTH: 2 MILLIGRAM
     Route: 048
  7. AMANTADINE [Concomitant]
     Active Substance: AMANTADINE
     Indication: Product used for unknown indication
     Dosage: 3 TABLET DAILY BEFORE DUODOPA, FORM STRENGTH: 100 MILLIGRAM
     Route: 048

REACTIONS (2)
  - Respiratory tract infection [Recovered/Resolved]
  - Asthenia [Recovered/Resolved]

NARRATIVE: CASE EVENT DATE: 20241012
